FAERS Safety Report 20873604 (Version 1)
Quarter: 2022Q2

REPORT INFORMATION
  Report Type: Spontaneous
  Country: US (occurrence: None)
  Receive Date: 20220525
  Receipt Date: 20220525
  Transmission Date: 20220721
  Serious: No
  Sender: FDA-Public Use
  Company Number: None

PATIENT
  Age: 52 Year
  Sex: Female
  Weight: 79.8 kg

DRUGS (3)
  1. TAXOL [Suspect]
     Active Substance: PACLITAXEL
     Dates: end: 20220513
  2. PERTUZUMAB [Suspect]
     Active Substance: PERTUZUMAB
     Dates: end: 20220513
  3. HERCEPTIN [Suspect]
     Active Substance: TRASTUZUMAB
     Dates: end: 20220513

REACTIONS (6)
  - Lacrimation increased [None]
  - Blindness [None]
  - Cataract [None]
  - Visual impairment [None]
  - Eyeglasses therapy [None]
  - Product prescribing error [None]

NARRATIVE: CASE EVENT DATE: 20220520
